FAERS Safety Report 16764806 (Version 1)
Quarter: 2019Q3

REPORT INFORMATION
  Report Type: Spontaneous
  Country: DE (occurrence: DE)
  Receive Date: 20190903
  Receipt Date: 20190903
  Transmission Date: 20191005
  Serious: No
  Sender: FDA-Public Use
  Company Number: DE-BEH-2019105937

PATIENT
  Sex: Male
  Weight: 12 kg

DRUGS (2)
  1. MARCUMAR [Interacting]
     Active Substance: PHENPROCOUMON
  2. PRIVIGEN [Suspect]
     Active Substance: HUMAN IMMUNOGLOBULIN G
     Dosage: 5 GRAM, QMT
     Route: 065
     Dates: start: 201905

REACTIONS (2)
  - Drug interaction [Unknown]
  - International normalised ratio decreased [Unknown]
